FAERS Safety Report 17065197 (Version 1)
Quarter: 2019Q4

REPORT INFORMATION
  Report Type: Report from Study
  Country: GB (occurrence: GB)
  Receive Date: 20191122
  Receipt Date: 20191122
  Transmission Date: 20200122
  Serious: Yes (Other)
  Sender: FDA-Public Use
  Company Number: GB-EMD SERONO-9130187

PATIENT
  Sex: Male

DRUGS (2)
  1. MAVENCLAD [Suspect]
     Active Substance: CLADRIBINE
     Dosage: FIRST YEAR SECOND WEEK THERAPY: TWO TABLETS (EACH OF 10 MG) ON DAYS 1 TO 2 AND ONE TABLET ON DAYS 3
     Route: 048
  2. MAVENCLAD [Suspect]
     Active Substance: CLADRIBINE
     Indication: MULTIPLE SCLEROSIS
     Dosage: FIRST YEAR FIRST WEEK THERAPY: TWO TABLETS (EACH OF 10 MG) ON DAYS 1 TO 2 AND ONE TABLET ON DAYS 3 T
     Route: 048
     Dates: start: 20181105

REACTIONS (2)
  - JC polyomavirus test positive [Unknown]
  - Ill-defined disorder [Unknown]
